FAERS Safety Report 5926074-4 (Version None)
Quarter: 2008Q4

REPORT INFORMATION
  Report Type: 
  Country: None (occurrence: None)
  Receive Date: 20081016
  Receipt Date: 20080930
  Transmission Date: 20090506
  Serious: Yes (Other)
  Sender: FDA-Public Use
  Company Number: 8037607

PATIENT
  Age: 24 Year
  Sex: Female

DRUGS (4)
  1. PREDNISOLONE [Suspect]
     Dates: start: 20070101
  2. MYCOPHENOLATE MOFETIL [Suspect]
     Dates: start: 20070101
  3. BASILIXIMAB [Concomitant]
     Dates: start: 20070101
  4. TACROLIMUS [Suspect]
     Dates: start: 20070101

REACTIONS (4)
  - DRUG LEVEL INCREASED [None]
  - DRUG TOXICITY [None]
  - NEUROTOXICITY [None]
  - REVERSIBLE POSTERIOR LEUKOENCEPHALOPATHY SYNDROME [None]
